FAERS Safety Report 10177841 (Version 1)
Quarter: 2014Q2

REPORT INFORMATION
  Report Type: Spontaneous
  Country: US (occurrence: US)
  Receive Date: 20140516
  Receipt Date: 20140516
  Transmission Date: 20141212
  Serious: No
  Sender: FDA-Public Use
  Company Number: US-SA-2013SA134733

PATIENT
  Age: 40 Year
  Sex: Female

DRUGS (2)
  1. APIDRA [Suspect]
     Indication: TYPE 1 DIABETES MELLITUS
     Dosage: PATIENT TAKES 24-48 UNITS
     Route: 051
  2. MEDTRONIC MINI MED IMPLANTABLE DEVICE [Concomitant]

REACTIONS (2)
  - Hot flush [Not Recovered/Not Resolved]
  - Blood glucose increased [Not Recovered/Not Resolved]
